FAERS Safety Report 7757500-6 (Version None)
Quarter: 2011Q3

REPORT INFORMATION
  Report Type: 
  Country: None (occurrence: None)
  Receive Date: 20110916
  Receipt Date: 20110912
  Transmission Date: 20111222
  Serious: Yes (Life-Threatening, Other)
  Sender: FDA-Public Use
  Company Number: US-NAPPMUNDI-USA-2011-0073960

PATIENT
  Sex: Female
  Weight: 72 kg

DRUGS (2)
  1. TRAMADOL HCL [Suspect]
     Indication: PAIN
     Dosage: 50 MG, PRN
     Route: 048
  2. BUTRANS [Suspect]
     Indication: PAIN
     Dosage: 5 MCG, Q1H
     Route: 062
     Dates: start: 20110810, end: 20110813

REACTIONS (1)
  - SUICIDAL IDEATION [None]
